FAERS Safety Report 9502009 (Version 1)
Quarter: 2013Q3

REPORT INFORMATION
  Report Type: Report from Study
  Country: US (occurrence: US)
  Receive Date: 20130905
  Receipt Date: 20130905
  Transmission Date: 20140515
  Serious: Yes (Hospitalization, Other)
  Sender: FDA-Public Use
  Company Number: US-ABBOTT-13P-163-1140554-00

PATIENT
  Sex: Male
  Weight: 80.81 kg

DRUGS (9)
  1. HUMIRA [Suspect]
     Indication: RHEUMATOID ARTHRITIS
     Route: 058
     Dates: start: 200201
  2. HUMIRA [Suspect]
     Indication: PSORIASIS
     Route: 058
     Dates: start: 20130818
  3. ATENOLOL [Concomitant]
     Indication: HYPERTENSION
  4. GLIPIZIDE [Concomitant]
     Indication: DIABETES MELLITUS
  5. TAMSULOSIN [Concomitant]
     Indication: PROSTATOMEGALY
  6. FOLIC ACID [Concomitant]
     Indication: RHEUMATOID ARTHRITIS
  7. CRESTOR [Concomitant]
     Indication: BLOOD CHOLESTEROL INCREASED
  8. PLAVIX [Concomitant]
     Indication: PRODUCT USED FOR UNKNOWN INDICATION
  9. MORPHINE [Concomitant]
     Indication: ARTHRALGIA

REACTIONS (6)
  - Osteoarthritis [Recovered/Resolved]
  - Procedural complication [Recovered/Resolved]
  - Infection [Recovered/Resolved]
  - Device related infection [Recovered/Resolved]
  - Arthralgia [Recovered/Resolved]
  - Blood test abnormal [Recovered/Resolved]
